FAERS Safety Report 10101688 (Version 1)
Quarter: 2014Q2

REPORT INFORMATION
  Report Type: Spontaneous
  Country: US (occurrence: None)
  Receive Date: 20140423
  Receipt Date: 20140423
  Transmission Date: 20141212
  Serious: Yes (Life-Threatening, Disabling)
  Sender: FDA-Public Use
  Company Number: None

PATIENT
  Age: 64 Year
  Sex: Female
  Weight: 104.78 kg

DRUGS (1)
  1. THALLIUM [Suspect]

REACTIONS (3)
  - Headache [None]
  - Blood pressure increased [None]
  - Atrioventricular block [None]
